FAERS Safety Report 20158784 (Version 4)
Quarter: 2021Q4

REPORT INFORMATION
  Report Type: Report from Study
  Country: ES (occurrence: ES)
  Receive Date: 20211208
  Receipt Date: 20211221
  Transmission Date: 20220303
  Serious: Yes (Hospitalization)
  Sender: FDA-Public Use
  Company Number: ES-ABBVIE-21K-144-4186406-00

PATIENT
  Age: 59 Year
  Sex: Male
  Weight: 95 kg

DRUGS (2)
  1. CARBIDOPA\LEVODOPA [Suspect]
     Active Substance: CARBIDOPA\LEVODOPA
     Indication: Parkinson^s disease
     Route: 050
     Dates: start: 20190919
  2. CARBIDOPA\LEVODOPA [Suspect]
     Active Substance: CARBIDOPA\LEVODOPA
     Dosage: DUODOPA DOSE WAS READJUSTED
     Route: 050

REACTIONS (6)
  - Infection [Not Recovered/Not Resolved]
  - Medical device site pain [Not Recovered/Not Resolved]
  - Medical device site erythema [Unknown]
  - Discomfort [Unknown]
  - Medical device site discharge [Unknown]
  - Dyskinesia [Unknown]

NARRATIVE: CASE EVENT DATE: 20211125
